FAERS Safety Report 24926635 (Version 4)
Quarter: 2025Q3

REPORT INFORMATION
  Report Type: Spontaneous
  Country: US (occurrence: US)
  Receive Date: 20250205
  Receipt Date: 20250712
  Transmission Date: 20251021
  Serious: Yes (Death, Hospitalization)
  Sender: CHIESI
  Company Number: US-CHIESI-2025CHF00709

PATIENT
  Age: 0 Year
  Sex: Female
  Weight: 5.397 kg

DRUGS (2)
  1. FILSUVEZ [Suspect]
     Active Substance: BIRCH TRITERPENES
     Indication: Epidermolysis bullosa
     Route: 061
     Dates: start: 20241219
  2. FILSUVEZ [Suspect]
     Active Substance: BIRCH TRITERPENES
     Route: 061
     Dates: end: 20250707

REACTIONS (4)
  - Death [Fatal]
  - Ill-defined disorder [Not Recovered/Not Resolved]
  - Wound [Not Recovered/Not Resolved]
  - Skin disorder [Not Recovered/Not Resolved]

NARRATIVE: CASE EVENT DATE: 20250101
